FAERS Safety Report 20376704 (Version 3)
Quarter: 2022Q3

REPORT INFORMATION
  Report Type: Report from Study
  Country: US (occurrence: US)
  Receive Date: 20220125
  Receipt Date: 20220822
  Transmission Date: 20221026
  Serious: Yes (Hospitalization)
  Sender: FDA-Public Use
  Company Number: US-BIOGEN-2022BI01086834

PATIENT
  Sex: Female
  Weight: 63.560 kg

DRUGS (21)
  1. VUMERITY [Suspect]
     Active Substance: DIROXIMEL FUMARATE
     Indication: Multiple sclerosis
     Dosage: STARTING DOSE
     Route: 050
     Dates: start: 20210716
  2. VUMERITY [Suspect]
     Active Substance: DIROXIMEL FUMARATE
     Dosage: STARTING DOSE
     Route: 050
     Dates: start: 202108
  3. VUMERITY [Suspect]
     Active Substance: DIROXIMEL FUMARATE
     Dosage: MAINTENANCE DOSE
     Route: 050
  4. COVID-19 VACCINE NOS [Suspect]
     Active Substance: COVID-19 VACCINE NOS
     Indication: COVID-19 prophylaxis
     Route: 050
  5. HAIR SKIN AND NAILS FORMULA [Concomitant]
     Indication: Product used for unknown indication
     Route: 050
  6. NORDITROPIN [Concomitant]
     Active Substance: SOMATROPIN
     Indication: Product used for unknown indication
     Dosage: 30MG/3ML SOLN PEN-INJ, 1 SUBCUTANEOUS DAILY
     Route: 050
  7. XANAX [Concomitant]
     Active Substance: ALPRAZOLAM
     Indication: Product used for unknown indication
     Dosage: 0.25MG TABLET, 1 (ONE) ORAL ONCE DAILY AS NEEDED
     Route: 050
     Dates: start: 20210112
  8. EMGALITY [Concomitant]
     Active Substance: GALCANEZUMAB-GNLM
     Indication: Migraine
     Dosage: 120MG/ML SOLUTION AUTO-INJ (ONE) SUBCUTANEOUS EVERY MONTH
     Route: 050
     Dates: start: 20210112
  9. VITAMIN E [Concomitant]
     Active Substance: .ALPHA.-TOCOPHEROL
     Indication: Product used for unknown indication
     Dosage: 400 UNIT TABLET, ORAL DAILY
     Route: 050
  10. EXTRA STRENGTH NON ASPIRIN [Concomitant]
     Indication: Product used for unknown indication
     Dosage: 500 MG CAPSULE, 3 ORAL AS NEEDED
     Route: 050
  11. VITAMIN D [Concomitant]
     Active Substance: VITAMIN D NOS
     Indication: Product used for unknown indication
     Dosage: 5000 MG ORAL DAILY, SPECIFIC STRENGTH UNKNOWN
     Route: 050
  12. CALCIUM CARBONATE [Concomitant]
     Active Substance: CALCIUM CARBONATE
     Indication: Product used for unknown indication
     Dosage: 600 MG ORAL DAILY, SPECIFIC STRENGTH UNKNOWN
     Route: 050
  13. FOLIC ACID [Concomitant]
     Active Substance: FOLIC ACID
     Indication: Product used for unknown indication
     Route: 050
  14. FISH OIL [Concomitant]
     Active Substance: FISH OIL
     Indication: Product used for unknown indication
     Route: 050
  15. MEDROXYPROGESTERONE ACETATE [Concomitant]
     Active Substance: MEDROXYPROGESTERONE ACETATE
     Indication: Product used for unknown indication
     Dosage: 10 MG TABLET, 1 ORAL DAYS 1-12 IN CYCLE
     Route: 050
  16. ESTRADIOL [Concomitant]
     Active Substance: ESTRADIOL
     Indication: Product used for unknown indication
     Route: 050
  17. PROBIOTIC FORMULA [Concomitant]
     Indication: Product used for unknown indication
     Route: 050
  18. HYDROCORTISONE [Concomitant]
     Active Substance: HYDROCORTISONE
     Indication: Product used for unknown indication
     Dosage: 3 IN AM, 1 IN PM ORAL TWO TIMES DAILY
     Route: 050
  19. SYNTHROID [Concomitant]
     Active Substance: LEVOTHYROXINE SODIUM
     Indication: Product used for unknown indication
     Route: 050
  20. BAYER ASPIRIN EC LOW DOSE [Concomitant]
     Indication: Product used for unknown indication
     Dosage: TABLET DR, DAILY
     Route: 050
  21. PAMELOR [Concomitant]
     Active Substance: NORTRIPTYLINE HYDROCHLORIDE
     Indication: Pain in extremity
     Dosage: QHS
     Route: 050
     Dates: start: 20210716

REACTIONS (6)
  - Immunisation reaction [Not Recovered/Not Resolved]
  - COVID-19 [Unknown]
  - Product dose omission in error [Unknown]
  - Abdominal pain upper [Recovered/Resolved]
  - Vomiting [Recovered/Resolved]
  - Nausea [Recovered/Resolved]
